FAERS Safety Report 13932757 (Version 3)
Quarter: 2017Q4

REPORT INFORMATION
  Report Type: Spontaneous
  Country: US (occurrence: US)
  Receive Date: 20170904
  Receipt Date: 20171110
  Transmission Date: 20180320
  Serious: Yes (Other)
  Sender: FDA-Public Use
  Company Number: US-ASTRAZENECA-2017SE89029

PATIENT
  Sex: Male

DRUGS (1)
  1. SYMBICORT [Suspect]
     Active Substance: BUDESONIDE\FORMOTEROL FUMARATE DIHYDRATE
     Dosage: 80/4.5 MCG TWO INHALATIONS TWICE A DAY
     Route: 055
     Dates: start: 201708

REACTIONS (5)
  - Pneumothorax [Unknown]
  - Intentional product misuse [Recovered/Resolved]
  - Device use error [Unknown]
  - Cyst rupture [Unknown]
  - Product quality issue [Unknown]
